FAERS Safety Report 20035789 (Version 1)
Quarter: 2021Q4

REPORT INFORMATION
  Report Type: Spontaneous
  Country: GB (occurrence: GB)
  Receive Date: 20211104
  Receipt Date: 20211104
  Transmission Date: 20220303
  Serious: Yes (Other)
  Sender: FDA-Public Use
  Company Number: GB-BoehringerIngelheim-2021-BI-136091

PATIENT
  Sex: Female

DRUGS (1)
  1. PRAMIPEXOLE [Suspect]
     Active Substance: PRAMIPEXOLE
     Indication: Restless legs syndrome

REACTIONS (3)
  - Glaucoma [Unknown]
  - Optic nerve injury [Unknown]
  - Intentional product use issue [Unknown]
